FAERS Safety Report 4293977-9 (Version None)
Quarter: 2004Q1

REPORT INFORMATION
  Report Type: 
  Country: None (occurrence: None)
  Receive Date: 20040211
  Receipt Date: 20040122
  Transmission Date: 20041129
  Serious: Yes (Life-Threatening, Hospitalization)
  Sender: FDA-Public Use
  Company Number: JP_031202305

PATIENT
  Age: 28 Year
  Sex: Female
  Weight: 26 kg

DRUGS (7)
  1. DOBUTREX [Suspect]
     Indication: CARDIAC FAILURE
     Dosage: 1500 MG/DAY
     Dates: start: 20030125, end: 20030129
  2. BOSMIN (EPINEPHRINE HYDROCHLORIDE) [Concomitant]
  3. MEYLON (SODIUM BICARBONATE) [Concomitant]
  4. INOVAN (DOPAMINE HYDROCHLORIDE) [Concomitant]
  5. NOREPINEPHRINE [Concomitant]
  6. ELASPOL (SIVELESTAT) [Concomitant]
  7. GLUCOSE [Concomitant]

REACTIONS (1)
  - CARDIOMYOPATHY [None]
